FAERS Safety Report 7648479-6 (Version None)
Quarter: 2011Q3

REPORT INFORMATION
  Report Type: 
  Country: None (occurrence: None)
  Receive Date: 20110801
  Receipt Date: 20110721
  Transmission Date: 20111222
  Serious: Yes (Other)
  Sender: FDA-Public Use
  Company Number: US-ASTRAZENECA-2011SE44171

PATIENT
  Sex: Female

DRUGS (20)
  1. CALCIUM CARBONATE [Concomitant]
  2. LAMICTAL [Concomitant]
     Route: 048
  3. AGGRENOX [Concomitant]
     Dosage: 25-200MG ONE TABLET TWICE A DAY
  4. MULTI-VITAMINS [Concomitant]
  5. RECLAST [Concomitant]
     Dosage: 5MG/100ML INFUSED OVER 15-30 MINUTS
     Dates: start: 20110224
  6. NEXIUM [Concomitant]
     Route: 048
  7. CRANBERRY [Concomitant]
  8. VITAMIN D [Concomitant]
  9. CARDIZEM [Concomitant]
     Route: 048
  10. ACTOS [Concomitant]
  11. CYMBALTA [Concomitant]
     Route: 048
  12. NORCO TABS [Concomitant]
     Dosage: EVERY 4 HOURS AS NEEDED
  13. ALIGN OTC [Concomitant]
     Dosage: EVERYDAY
  14. NEXIUM [Concomitant]
     Route: 048
  15. RECLAST [Concomitant]
     Dosage: 5MG/100ML INFUSED OVER 15-30 MINUTS
     Dates: start: 20110217
  16. ZETIA [Concomitant]
  17. OXYGEN [Concomitant]
     Dosage: 2 LITER AT BEDTIME AND 1L DURING THE DAY
  18. FERROUS SULFATE TAB [Concomitant]
  19. CRESTOR [Suspect]
     Route: 048
  20. GLIPIZIDE [Concomitant]

REACTIONS (21)
  - DIABETES MELLITUS INADEQUATE CONTROL [None]
  - DEPRESSION [None]
  - POLLAKIURIA [None]
  - SPEECH DISORDER [None]
  - OSTEOPOROSIS POSTMENOPAUSAL [None]
  - ASTHENIA [None]
  - DIABETES MELLITUS [None]
  - DYSPHAGIA [None]
  - ORTHOSTATIC HYPOTENSION [None]
  - DYSLIPIDAEMIA [None]
  - HYPERTENSION [None]
  - DIARRHOEA [None]
  - CONVULSION [None]
  - LUNG NEOPLASM [None]
  - ANAEMIA [None]
  - HYPOXIA [None]
  - BACK PAIN [None]
  - CEREBROVASCULAR ACCIDENT [None]
  - PULMONARY FIBROSIS [None]
  - DYSPNOEA [None]
  - DRUG HYPERSENSITIVITY [None]
